FAERS Safety Report 22302552 (Version 1)
Quarter: 2023Q2

REPORT INFORMATION
  Report Type: Spontaneous
  Country: FR (occurrence: FR)
  Receive Date: 20230510
  Receipt Date: 20230510
  Transmission Date: 20230722
  Serious: Yes (Death, Hospitalization, Other)
  Sender: FDA-Public Use
  Company Number: FR-ASTELLAS-2023US014115

PATIENT
  Age: 82 Year
  Sex: Male

DRUGS (2)
  1. XTANDI [Suspect]
     Active Substance: ENZALUTAMIDE
     Indication: Product used for unknown indication
     Dosage: 160 MG, ONCE DAILY (4 TABLETS/ DAY)
     Route: 065
     Dates: start: 202005
  2. XTANDI [Suspect]
     Active Substance: ENZALUTAMIDE
     Dosage: 120 MG, ONCE DAILY (3 TABLETS/ DAY)
     Route: 065
     Dates: start: 202009

REACTIONS (11)
  - Death [Fatal]
  - General physical health deterioration [Unknown]
  - Prostatic specific antigen increased [Unknown]
  - Oesophageal hypomotility [Unknown]
  - Vertigo [Unknown]
  - Fatigue [Unknown]
  - Memory impairment [Unknown]
  - Condition aggravated [Unknown]
  - Confusional state [Unknown]
  - Decreased appetite [Unknown]
  - Dysphagia [Unknown]

NARRATIVE: CASE EVENT DATE: 20220101
